FAERS Safety Report 12942654 (Version 2)
Quarter: 2017Q1

REPORT INFORMATION
  Report Type: Spontaneous
  Country: US (occurrence: US)
  Receive Date: 20161114
  Receipt Date: 20170214
  Transmission Date: 20170428
  Serious: No
  Sender: FDA-Public Use
  Company Number: US-ASTRAZENECA-2016SF13278

PATIENT
  Age: 953 Month
  Sex: Female
  Weight: 55.8 kg

DRUGS (3)
  1. MEDICATION FOR DIABETES [Concomitant]
  2. SYMBICORT [Suspect]
     Active Substance: BUDESONIDE\FORMOTEROL FUMARATE DIHYDRATE
     Indication: CHRONIC OBSTRUCTIVE PULMONARY DISEASE
     Dosage: 160/4.5MCG 2 PUFFS TWICE DAILY , 120 INHALATIONS
     Route: 055
     Dates: start: 20161018
  3. MEDICATION FOR HIGH BLOOD PRESSURE [Concomitant]
     Active Substance: UNSPECIFIED INGREDIENT

REACTIONS (4)
  - Oropharyngeal pain [Unknown]
  - Incorrect dose administered [Unknown]
  - Product taste abnormal [Unknown]
  - Dyspnoea [Unknown]

NARRATIVE: CASE EVENT DATE: 201610
